FAERS Safety Report 25613530 (Version 1)
Quarter: 2025Q3

REPORT INFORMATION
  Report Type: Spontaneous
  Country: EU (occurrence: EU)
  Receive Date: 20250728
  Receipt Date: 20250728
  Transmission Date: 20251020
  Serious: Yes (Other)
  Sender: MYLAN
  Company Number: None

PATIENT
  Age: 26 Year
  Sex: Male

DRUGS (8)
  1. BUPRENORPHINE [Interacting]
     Active Substance: BUPRENORPHINE
     Indication: Product used for unknown indication
     Dosage: 6 MILLIGRAM, QD
  2. BUPRENORPHINE [Interacting]
     Active Substance: BUPRENORPHINE
     Dosage: 6 MILLIGRAM, QD
     Route: 048
  3. BUPRENORPHINE [Interacting]
     Active Substance: BUPRENORPHINE
     Dosage: 6 MILLIGRAM, QD
     Route: 048
  4. BUPRENORPHINE [Interacting]
     Active Substance: BUPRENORPHINE
     Dosage: 6 MILLIGRAM, QD
  5. COCAINE [Interacting]
     Active Substance: COCAINE
     Indication: Product used for unknown indication
  6. COCAINE [Interacting]
     Active Substance: COCAINE
     Route: 045
  7. COCAINE [Interacting]
     Active Substance: COCAINE
     Route: 045
  8. COCAINE [Interacting]
     Active Substance: COCAINE

REACTIONS (2)
  - Drug abuse [Not Recovered/Not Resolved]
  - Drug interaction [Recovered/Resolved]

NARRATIVE: CASE EVENT DATE: 20250610
